FAERS Safety Report 8366360-4 (Version None)
Quarter: 2012Q2

REPORT INFORMATION
  Report Type: 
  Country: None (occurrence: None)
  Receive Date: 20120517
  Receipt Date: 20120511
  Transmission Date: 20120825
  Serious: Yes (Hospitalization)
  Sender: FDA-Public Use
  Company Number: US-BAYER-2012-047389

PATIENT
  Age: 20 Year
  Sex: Female
  Weight: 74 kg

DRUGS (11)
  1. ASPIRIN [Concomitant]
     Dosage: 325 MG, UNK
     Route: 048
     Dates: start: 20071105
  2. OXYCODONE AND ACETAMINOPHEN [Concomitant]
     Dosage: 5 AND 325, UNK
     Route: 048
     Dates: start: 20071105, end: 20110408
  3. AMOXICILLIN [Concomitant]
     Dosage: 500 MG, UNK
     Route: 048
     Dates: start: 20010417, end: 20110513
  4. YAZ [Suspect]
  5. YASMIN [Suspect]
  6. HYDROCODONE BITARTRATE AND ACETAMINOPHEN [Concomitant]
     Dosage: 5 AND 500, UNK
     Route: 048
     Dates: start: 20031009, end: 20110404
  7. AZITHROMYCIN [Concomitant]
     Dosage: 250 MG, UNK
     Route: 048
     Dates: start: 20070209, end: 20110203
  8. EPIPEN [Concomitant]
     Dosage: 0.3 MG, UNK
     Dates: start: 20010629, end: 20110228
  9. CEPHALEXIN [Concomitant]
     Dosage: 500 MG, UNK
     Route: 048
     Dates: start: 20071105
  10. VIGAMOX [Concomitant]
     Dosage: 0.5 %, UNK
     Route: 031
     Dates: start: 20061016, end: 20100102
  11. ONDANSETRON [Concomitant]
     Dosage: 8 MG, UNK
     Route: 048
     Dates: start: 20071107

REACTIONS (1)
  - PULMONARY EMBOLISM [None]
